FAERS Safety Report 5993549-1 (Version None)
Quarter: 2008Q4

REPORT INFORMATION
  Report Type: 
  Country: None (occurrence: None)
  Receive Date: 20081212
  Receipt Date: 20081201
  Transmission Date: 20090506
  Serious: Yes (Hospitalization)
  Sender: FDA-Public Use
  Company Number: PHHY2008FR30694

PATIENT
  Sex: Female

DRUGS (11)
  1. TAREG [Suspect]
     Indication: HYPERTENSION
  2. ESIDRIX [Suspect]
     Indication: HYPERTENSION
  3. NITRODERM [Suspect]
  4. LASIX [Suspect]
     Indication: HYPERTENSION
     Dosage: 500 MG, BID
  5. ALDACTONE [Suspect]
  6. HUMALOG [Concomitant]
     Indication: INSULIN-REQUIRING TYPE 2 DIABETES MELLITUS
     Dosage: UNK
     Route: 058
  7. SOMATULINE AUTOGEL [Concomitant]
     Indication: THYROIDECTOMY
     Dosage: UNK
     Route: 058
     Dates: end: 20080206
  8. LEVOTHYROX [Concomitant]
     Indication: THYROIDECTOMY
     Dosage: UNK
     Route: 048
  9. TARDYFERON [Concomitant]
     Indication: IRON DEFICIENCY
     Dosage: UNK
     Route: 048
     Dates: end: 20080206
  10. TAHOR [Concomitant]
     Indication: HYPERCHOLESTEROLAEMIA
     Dosage: UNK
     Route: 048
     Dates: end: 20080206
  11. MOPRAL [Concomitant]
     Dosage: UNK
     Route: 048
     Dates: end: 20080206

REACTIONS (6)
  - FALL [None]
  - HYPERCREATININAEMIA [None]
  - HYPERKALAEMIA [None]
  - HYPERURICAEMIA [None]
  - HYPONATRAEMIA [None]
  - MALAISE [None]
